FAERS Safety Report 7379570-X (Version None)
Quarter: 2011Q1

REPORT INFORMATION
  Report Type: 
  Country: None (occurrence: None)
  Receive Date: 20110329
  Receipt Date: 20110315
  Transmission Date: 20110831
  Serious: Yes (Hospitalization)
  Sender: FDA-Public Use
  Company Number: AR-JNJFOC-20110301427

PATIENT
  Sex: Female

DRUGS (1)
  1. REMICADE [Suspect]
     Indication: PSORIATIC ARTHROPATHY
     Dosage: RECEIVED 2 INFUSIONS
     Route: 042

REACTIONS (4)
  - GENERALISED ERYTHEMA [None]
  - SEPSIS [None]
  - ERYTHRODERMIC PSORIASIS [None]
  - CELLULITIS [None]
